FAERS Safety Report 15832533 (Version 1)
Quarter: 2018Q4

REPORT INFORMATION
  Report Type: Spontaneous
  Country: US (occurrence: US)
  Receive Date: 20181220
  Receipt Date: 20181220
  Transmission Date: 20190205
  Serious: No
  Sender: FDA-Public Use
  Company Number: None

PATIENT
  Age: 57 Year
  Sex: Male

DRUGS (1)
  1. MAVYRET [Suspect]
     Active Substance: GLECAPREVIR\PIBRENTASVIR
     Route: 048
     Dates: start: 201811

REACTIONS (6)
  - Headache [None]
  - Abdominal discomfort [None]
  - Fatigue [None]
  - Infection [None]
  - Dry mouth [None]
  - Post procedural infection [None]

NARRATIVE: CASE EVENT DATE: 20181218
